FAERS Safety Report 23275437 (Version 2)
Quarter: 2023Q4

REPORT INFORMATION
  Report Type: Other
  Country: IT (occurrence: IT)
  Receive Date: 20231208
  Receipt Date: 20231222
  Transmission Date: 20240110
  Serious: Yes (Hospitalization)
  Sender: FDA-Public Use
  Company Number: IT-ROCHE-3469721

PATIENT
  Age: 56 Year
  Sex: Female

DRUGS (6)
  1. RITUXIMAB [Suspect]
     Active Substance: RITUXIMAB
     Indication: Myelin oligodendrocyte glycoprotein antibody-associated disease
     Dosage: FOLLOWED BY NEW COURSES EVERY 6 MONTHS.
     Route: 042
     Dates: start: 202004
  2. INTERFERON BETA-1A [Concomitant]
     Active Substance: INTERFERON BETA-1A
     Indication: Multiple sclerosis
  3. NATALIZUMAB [Concomitant]
     Active Substance: NATALIZUMAB
  4. TOCILIZUMAB [Concomitant]
     Active Substance: TOCILIZUMAB
     Indication: Myelin oligodendrocyte glycoprotein antibody-associated disease
     Route: 042
     Dates: start: 202202
  5. TOCILIZUMAB [Concomitant]
     Active Substance: TOCILIZUMAB
     Route: 042
     Dates: start: 20230530
  6. TOCILIZUMAB [Concomitant]
     Active Substance: TOCILIZUMAB
     Indication: Myelin oligodendrocyte glycoprotein antibody-associated disease
     Route: 058

REACTIONS (3)
  - COVID-19 [Unknown]
  - Pseudomonas infection [Unknown]
  - Off label use [Unknown]

NARRATIVE: CASE EVENT DATE: 20220425
